FAERS Safety Report 6284254 (Version 11)
Quarter: 2014Q4

REPORT INFORMATION
  Report Type: Spontaneous
  Country: US (occurrence: US)
  Receive Date: 20070410
  Receipt Date: 20141216
  Transmission Date: 20150529
  Serious: Yes (Death, Hospitalization, Other)
  Sender: FDA-Public Use
  Company Number: US-ELI_LILLY_AND_COMPANY-US200703006008

PATIENT
  Age: 66 Year
  Sex: Male

DRUGS (19)
  1. ATIVAN [Concomitant]
     Active Substance: LORAZEPAM
  2. SUCRABEST [Concomitant]
  3. DIOVAN [Concomitant]
     Active Substance: VALSARTAN
  4. NORVASC [Concomitant]
     Active Substance: AMLODIPINE BESYLATE
  5. XOPENEX [Concomitant]
     Active Substance: LEVALBUTEROL HYDROCHLORIDE
  6. PRILOSEC [Concomitant]
     Active Substance: OMEPRAZOLE MAGNESIUM
  7. LEXAPRO [Concomitant]
     Active Substance: ESCITALOPRAM OXALATE
  8. LASIX [Concomitant]
     Active Substance: FUROSEMIDE
  9. ALBUTEROL. [Concomitant]
     Active Substance: ALBUTEROL
     Route: 055
  10. HEPARIN [Concomitant]
     Active Substance: HEPARIN SODIUM
  11. K-DUR [Concomitant]
     Active Substance: POTASSIUM CHLORIDE
  12. TENEX [Concomitant]
     Active Substance: GUANFACINE HYDROCHLORIDE
  13. TRAZODONE [Concomitant]
     Active Substance: TRAZODONE HYDROCHLORIDE
  14. CLARINEX [Concomitant]
     Active Substance: DESLORATADINE
  15. MAGNESIUM OXIDE. [Concomitant]
     Active Substance: MAGNESIUM OXIDE
  16. TOPROL XL [Concomitant]
     Active Substance: METOPROLOL SUCCINATE
  17. FORTEO [Suspect]
     Active Substance: TERIPARATIDE
     Indication: OSTEOPOROSIS
     Dosage: UNK, UNK
     Dates: start: 200606, end: 20070228
  18. RANITIDINE [Concomitant]
     Active Substance: RANITIDINE\RANITIDINE HYDROCHLORIDE
  19. SENOKOT [Concomitant]
     Active Substance: SENNOSIDES

REACTIONS (12)
  - Malnutrition [Unknown]
  - Fall [Recovered/Resolved]
  - Diverticulum [Unknown]
  - Osteoarthritis [Unknown]
  - Death [Fatal]
  - Osteosarcoma [Unknown]
  - Aortic calcification [Unknown]
  - Pulmonary mass [Unknown]
  - Inguinal hernia [Unknown]
  - Spinal osteoarthritis [Unknown]
  - Pneumonia [Unknown]
  - Cholelithiasis [Unknown]

NARRATIVE: CASE EVENT DATE: 20060728
